FAERS Safety Report 9671995 (Version 2)
Quarter: 2014Q1

REPORT INFORMATION
  Report Type: Spontaneous
  Country: GB (occurrence: None)
  Receive Date: 20131104
  Receipt Date: 20140204
  Transmission Date: 20141002
  Serious: Yes (Life-Threatening, Hospitalization, Other)
  Sender: FDA-Public Use
  Company Number: AUR-APL-2013-08907

PATIENT
  Age: 65 Year
  Sex: Female

DRUGS (11)
  1. METFORMIN [Suspect]
     Indication: PRODUCT USED FOR UNKNOWN INDICATION
     Route: 048
     Dates: end: 20120804
  2. FUROSEMIDE (FUROSEMIDE) [Suspect]
     Indication: HYPERTENSION
     Route: 048
     Dates: end: 20120804
  3. CELECOXIB (CELECOXIB) [Suspect]
     Indication: ANALGESIC THERAPY
     Route: 048
     Dates: end: 20120804
  4. CANDESARTAN [Suspect]
     Indication: HYPERTENSION
     Route: 048
     Dates: end: 20120804
  5. CLONAZEPAM (CLONAZEPAM) [Concomitant]
  6. GABAPENTIN (GABAPENTIN) [Concomitant]
  7. MIRTAZAPINE (MIRTAZAPINE) [Concomitant]
  8. RANITIDINE (RANITIDINE) [Concomitant]
  9. VENLAFAXINE (VENLAFAXINE) [Concomitant]
  10. VITAMINS (KAPSOVIT) [Concomitant]
  11. SITAGLIPTIN [Concomitant]

REACTIONS (6)
  - Diarrhoea [None]
  - Vomiting [None]
  - Malaise [None]
  - Dehydration [None]
  - Renal failure acute [None]
  - Haemodialysis [None]
